FAERS Safety Report 7926797-1 (Version None)
Quarter: 2011Q4

REPORT INFORMATION
  Report Type: 
  Country: None (occurrence: None)
  Receive Date: 20111118
  Receipt Date: 20111115
  Transmission Date: 20120403
  Serious: Yes (Other)
  Sender: FDA-Public Use
  Company Number: LU-JNJFOC-20110905797

PATIENT
  Sex: Female

DRUGS (3)
  1. SIMPONI [Suspect]
     Indication: PROCTOCOLITIS
     Route: 058
     Dates: start: 20110101, end: 20110601
  2. AZT [Concomitant]
     Indication: PROCTOCOLITIS
  3. SIMPONI [Suspect]
     Indication: RHEUMATOID ARTHRITIS
     Route: 058
     Dates: start: 20110101, end: 20110601

REACTIONS (2)
  - LYMPH NODE TUBERCULOSIS [None]
  - OFF LABEL USE [None]
